FAERS Safety Report 17797270 (Version 1)
Quarter: 2020Q2

REPORT INFORMATION
  Report Type: Spontaneous
  Country: US (occurrence: US)
  Receive Date: 20200517
  Receipt Date: 20200517
  Transmission Date: 20200714
  Serious: No
  Sender: FDA-Public Use
  Company Number: None

PATIENT
  Age: 46 Year
  Sex: Female
  Weight: 101.2 kg

DRUGS (12)
  1. METHYLPREDNISOLONE. [Concomitant]
     Active Substance: METHYLPREDNISOLONE
     Dates: start: 20200514
  2. OMEPRAZOLE. [Concomitant]
     Active Substance: OMEPRAZOLE
     Dates: start: 20200514
  3. CEFTRIAXONE. [Concomitant]
     Active Substance: CEFTRIAXONE
     Dates: start: 20200514
  4. CLONAZEPAM. [Concomitant]
     Active Substance: CLONAZEPAM
     Dates: start: 20200514
  5. DOXYCYCLINE. [Concomitant]
     Active Substance: DOXYCYCLINE
     Dates: start: 20200515
  6. ZIPRASIDONE. [Concomitant]
     Active Substance: ZIPRASIDONE
     Dates: start: 20200514
  7. FUROSEMIDE. [Concomitant]
     Active Substance: FUROSEMIDE
     Dates: start: 20200515
  8. ROPINIROLE. [Concomitant]
     Active Substance: ROPINIROLE
     Dates: start: 20200514
  9. REMDESIVIR. [Suspect]
     Active Substance: REMDESIVIR
     Indication: COVID-19
     Dates: start: 20200515, end: 20200517
  10. ENOXAPARIN [Concomitant]
     Active Substance: ENOXAPARIN
     Dates: start: 20200514
  11. BENZONATATE. [Concomitant]
     Active Substance: BENZONATATE
     Dates: start: 20200514
  12. TOPIRAMATE. [Concomitant]
     Active Substance: TOPIRAMATE
     Dates: start: 20200514

REACTIONS (3)
  - Alanine aminotransferase increased [None]
  - Therapy interrupted [None]
  - Liver function test increased [None]

NARRATIVE: CASE EVENT DATE: 20200517
